FAERS Safety Report 7070312-4 (Version None)
Quarter: 2010Q4

REPORT INFORMATION
  Report Type: 
  Country: None (occurrence: None)
  Receive Date: 20101028
  Receipt Date: 20101005
  Transmission Date: 20110411
  Serious: No
  Sender: FDA-Public Use
  Company Number: US-WYE-H18015010

PATIENT
  Sex: Female
  Weight: 43.58 kg

DRUGS (3)
  1. PROTONIX [Suspect]
     Indication: BARRETT'S OESOPHAGUS
     Route: 048
     Dates: start: 20100901
  2. PROTONIX [Suspect]
     Indication: HIATUS HERNIA
     Route: 048
     Dates: start: 20100901
  3. PROTONIX [Suspect]
     Indication: GASTROOESOPHAGEAL REFLUX DISEASE

REACTIONS (2)
  - DIZZINESS [None]
  - INFLUENZA [None]
